FAERS Safety Report 17668514 (Version 3)
Quarter: 2020Q4

REPORT INFORMATION
  Report Type: Spontaneous
  Country: JP (occurrence: JP)
  Receive Date: 20200415
  Receipt Date: 20201106
  Transmission Date: 20210113
  Serious: Yes (Other)
  Sender: FDA-Public Use
  Company Number: JP-AMGEN-JPNSP2020061041

PATIENT
  Age: 80 Year
  Sex: Female

DRUGS (3)
  1. BISPHOSPHONATES [Suspect]
     Active Substance: UNSPECIFIED INGREDIENT
     Indication: OSTEOPOROSIS
     Dosage: UNK
     Route: 065
  2. PRALIA [Suspect]
     Active Substance: DENOSUMAB
     Indication: OSTEOPOROSIS
     Dosage: UNK
     Route: 065
  3. BISPHOSPHONATES [Suspect]
     Active Substance: UNSPECIFIED INGREDIENT
     Dosage: UNK
     Route: 065

REACTIONS (1)
  - Ulna fracture [Recovering/Resolving]
